FAERS Safety Report 6060263-6 (Version None)
Quarter: 2009Q1

REPORT INFORMATION
  Report Type: 
  Country: None (occurrence: None)
  Receive Date: 20090129
  Receipt Date: 20090122
  Transmission Date: 20090719
  Serious: Yes (Hospitalization)
  Sender: FDA-Public Use
  Company Number: TCI2009A00223

PATIENT
  Age: 80 Year
  Sex: Female

DRUGS (1)
  1. AG-1749 (CODE NOT BROKEN) (LANSOPRAZOLE) (CAPSULES) [Suspect]
     Indication: PROPHYLAXIS AGAINST GASTROINTESTINAL ULCER
     Dosage: AG-1749 15 OR GEFARNATE 100 MG (2 IN 1 D) PER ORAL
     Route: 048
     Dates: start: 20080415

REACTIONS (2)
  - BLOOD CREATINE INCREASED [None]
  - BLOOD CREATINE PHOSPHOKINASE MB INCREASED [None]
